FAERS Safety Report 7357157-2 (Version None)
Quarter: 2011Q1

REPORT INFORMATION
  Report Type: 
  Country: None (occurrence: None)
  Receive Date: 20110308
  Receipt Date: 20110126
  Transmission Date: 20110831
  Serious: Yes (Other)
  Sender: FDA-Public Use
  Company Number: 028515

PATIENT
  Sex: Male

DRUGS (9)
  1. KEPPRA [Suspect]
     Indication: STATUS EPILEPTICUS
     Dosage: (500 MG QD ORAL) (500 MG BID ORAL) (500 MG QD ORAL)
     Route: 048
     Dates: start: 20101226, end: 20110121
  2. KEPPRA [Suspect]
     Indication: STATUS EPILEPTICUS
     Dosage: (500 MG QD ORAL) (500 MG BID ORAL) (500 MG QD ORAL)
     Route: 048
     Dates: start: 20110122, end: 20110126
  3. KEPPRA [Suspect]
     Indication: STATUS EPILEPTICUS
     Dosage: (500 MG QD ORAL) (500 MG BID ORAL) (500 MG QD ORAL)
     Route: 048
     Dates: start: 20101213, end: 20101225
  4. ALEVIATIN /00017401/ [Concomitant]
  5. TAKEPRON [Concomitant]
  6. DEPAKENE /00228502/ [Concomitant]
  7. URSO /00465701/ [Concomitant]
  8. PHEOBAL /00023201/ [Concomitant]
  9. RIVOTRIL [Concomitant]

REACTIONS (8)
  - BLOOD ALBUMIN DECREASED [None]
  - BLOOD LACTATE DEHYDROGENASE INCREASED [None]
  - RED BLOOD CELL COUNT DECREASED [None]
  - C-REACTIVE PROTEIN INCREASED [None]
  - STATUS EPILEPTICUS [None]
  - HYPOGLYCAEMIA [None]
  - HAEMATOCRIT DECREASED [None]
  - HAEMOGLOBIN DECREASED [None]
